FAERS Safety Report 4346460-6 (Version None)
Quarter: 2004Q2

REPORT INFORMATION
  Report Type: 
  Country: None (occurrence: None)
  Receive Date: 20040426
  Receipt Date: 20030326
  Transmission Date: 20050107
  Serious: No
  Sender: FDA-Public Use
  Company Number: US-BRISTOL-MYERS SQUIBB COMPANY-12222808

PATIENT
  Age: 62 Year
  Sex: Female
  Weight: 54 kg

DRUGS (6)
  1. CARBOPLATIN [Suspect]
     Indication: OVARIAN CANCER
     Dosage: TREATMENT WAS DELAYED BY 2 MONTHS DUE TO DECREASED NEUTROPHILS.
     Route: 042
     Dates: start: 20020701, end: 20020201
  2. TAXOL [Concomitant]
     Indication: OVARIAN CANCER
     Dosage: ADMINISTERED FOR THE LAST 4 CYCLES
     Dates: end: 20030201
  3. GEMZAR [Concomitant]
     Indication: OVARIAN CANCER
     Dosage: ADMINISTERED FOR THE FIRST 4 CYCLES
     Dates: start: 20020701
  4. BENADRYL [Concomitant]
     Indication: PREMEDICATION
     Route: 042
  5. NEUPOGEN [Concomitant]
  6. ONE-A-DAY [Concomitant]

REACTIONS (2)
  - NEUTROPHIL COUNT DECREASED [None]
  - TINNITUS [None]
